FAERS Safety Report 8529388-7 (Version None)
Quarter: 2012Q3

REPORT INFORMATION
  Report Type: 
  Country: None (occurrence: None)
  Receive Date: 20120723
  Receipt Date: 20120709
  Transmission Date: 20120928
  Serious: Yes (Hospitalization)
  Sender: FDA-Public Use
  Company Number: US-JNJFOC-20111200986

PATIENT
  Sex: Male
  Weight: 68.95 kg

DRUGS (16)
  1. NEXIUM [Concomitant]
     Indication: GASTROOESOPHAGEAL REFLUX DISEASE
     Route: 048
     Dates: start: 20070826, end: 20111129
  2. COSOPT [Concomitant]
     Indication: GLAUCOMA
     Route: 047
     Dates: start: 19900101
  3. PREDNISONE [Suspect]
     Indication: PROSTATE CANCER METASTATIC
     Route: 048
     Dates: start: 20110504, end: 20111129
  4. POTASSIUM CHLORIDE [Concomitant]
     Indication: HYPOKALAEMIA
     Route: 048
     Dates: start: 20110821, end: 20111129
  5. XEROFORM [Concomitant]
     Indication: WOUND
     Route: 061
     Dates: start: 20111020, end: 20111117
  6. NEXIUM [Concomitant]
     Route: 048
     Dates: start: 20111203, end: 20111206
  7. ABIRATERONE ACETATE [Suspect]
     Indication: PROSTATE CANCER METASTATIC
     Route: 048
     Dates: start: 20110504, end: 20111129
  8. METOPROLOL SUCCINATE [Concomitant]
     Indication: HYPERTENSION
     Route: 048
     Dates: start: 20110201, end: 20111206
  9. CALCIUM CITRATE WITH VITAMIN D [Concomitant]
     Indication: NUTRITIONAL SUPPORT
     Route: 048
     Dates: start: 20060901
  10. PRED FORTE [Concomitant]
     Indication: GLAUCOMA
     Route: 047
     Dates: start: 19900101
  11. ABIRATERONE ACETATE [Suspect]
     Route: 048
  12. SIMVASTATIN [Concomitant]
     Indication: HYPERCHOLESTEROLAEMIA
     Route: 048
     Dates: start: 20020101
  13. CLONIDINE [Concomitant]
     Indication: HYPERTENSION
     Route: 048
     Dates: start: 20111201, end: 20111205
  14. XEROFORM [Concomitant]
     Indication: BURNS SECOND DEGREE
     Route: 061
     Dates: start: 20111020, end: 20111117
  15. CLONIDINE [Concomitant]
     Route: 048
     Dates: start: 20110201, end: 20111201
  16. TRAVATAN [Concomitant]
     Indication: GLAUCOMA
     Route: 047
     Dates: start: 19900101

REACTIONS (2)
  - HYPERTENSION [None]
  - DIZZINESS [None]
